FAERS Safety Report 22044072 (Version 4)
Quarter: 2023Q1

REPORT INFORMATION
  Report Type: Report from Study
  Country: US (occurrence: None)
  Receive Date: 20230228
  Receipt Date: 20230317
  Transmission Date: 20230418
  Serious: Yes (Hospitalization)
  Sender: FDA-Public Use
  Company Number: US-Eisai Medical Research-EC-2023-133601

PATIENT
  Age: 54 Year
  Sex: Male
  Weight: 64.77 kg

DRUGS (16)
  1. LENVATINIB [Suspect]
     Active Substance: LENVATINIB
     Indication: Squamous cell carcinoma of head and neck
     Route: 048
     Dates: start: 20230125, end: 20230202
  2. PEMBROLIZUMAB [Suspect]
     Active Substance: PEMBROLIZUMAB
     Indication: Squamous cell carcinoma of head and neck
     Route: 041
     Dates: start: 20230125, end: 20230125
  3. ERGOCALCIFEROL [Concomitant]
     Active Substance: ERGOCALCIFEROL
     Dates: start: 20030101
  4. LIVE LACTOBACILLUS [Concomitant]
     Dates: start: 20130101
  5. ESCITALOPRAM [Concomitant]
     Active Substance: ESCITALOPRAM OXALATE
     Dates: start: 20220801
  6. METFORMIN [Concomitant]
     Active Substance: METFORMIN HYDROCHLORIDE
     Dates: start: 20220101
  7. ATORVASTATIN [Concomitant]
     Active Substance: ATORVASTATIN
     Dates: start: 20220101
  8. DOCUSATE SODIUM [Concomitant]
     Active Substance: DOCUSATE SODIUM
     Dates: start: 20221222
  9. BISACODYL [Concomitant]
     Active Substance: BISACODYL
     Dates: start: 20221222
  10. MAGNESIUM SULFATE [Concomitant]
     Active Substance: MAGNESIUM SULFATE
     Dates: start: 20230108, end: 20230208
  11. FENTANYL [Concomitant]
     Active Substance: FENTANYL
     Dates: start: 20220211
  12. IBUPROFEN [Concomitant]
     Active Substance: IBUPROFEN
     Dates: start: 20221201
  13. ACETAMINOPHEN [Concomitant]
     Active Substance: ACETAMINOPHEN
     Dates: start: 20221201
  14. OXYCODONE [Concomitant]
     Active Substance: OXYCODONE
     Dates: start: 20230105
  15. MORPHINE [Concomitant]
     Active Substance: MORPHINE
     Dates: start: 20230109
  16. PACLITAXEL [Concomitant]
     Active Substance: PACLITAXEL
     Dates: start: 20230115

REACTIONS (2)
  - Mouth haemorrhage [Recovered/Resolved]
  - Oral pain [Recovered/Resolved]

NARRATIVE: CASE EVENT DATE: 20230131
